FAERS Safety Report 7083887-6 (Version None)
Quarter: 2010Q4

REPORT INFORMATION
  Report Type: 
  Country: None (occurrence: None)
  Receive Date: 20101104
  Receipt Date: 20091130
  Transmission Date: 20110411
  Serious: No
  Sender: FDA-Public Use
  Company Number: US-ABBOTT-09P-163-0583545-00

PATIENT
  Sex: Female
  Weight: 55.388 kg

DRUGS (10)
  1. KALETRA [Suspect]
     Indication: HIV TEST POSITIVE
     Route: 048
     Dates: start: 20020101
  2. OXYCONTIN [Suspect]
     Indication: PAIN
     Dosage: AS REQUIRED, SOMETIME BREAKS PILL IN 1/2
  3. TRUVADA [Concomitant]
     Indication: HIV TEST POSITIVE
     Route: 048
  4. LIPITOR [Concomitant]
     Indication: PRODUCT USED FOR UNKNOWN INDICATION
     Route: 048
  5. FOLIC ACID [Concomitant]
     Indication: PRODUCT USED FOR UNKNOWN INDICATION
  6. KLONOPIN [Concomitant]
     Indication: PRODUCT USED FOR UNKNOWN INDICATION
     Route: 048
  7. TRAZODONE [Concomitant]
     Indication: PRODUCT USED FOR UNKNOWN INDICATION
  8. LOVAZA [Concomitant]
     Indication: BLOOD TRIGLYCERIDES
     Route: 048
     Dates: start: 20090601
  9. METOPROLOL [Concomitant]
     Indication: HEART RATE IRREGULAR
     Dosage: DAILY
     Dates: start: 20090601
  10. ASPIRIN [Concomitant]
     Indication: PRODUCT USED FOR UNKNOWN INDICATION
     Route: 048

REACTIONS (10)
  - BLOOD TRIGLYCERIDES INCREASED [None]
  - CARDIAC VALVE DISEASE [None]
  - DECREASED APPETITE [None]
  - DILATATION VENTRICULAR [None]
  - GALLBLADDER ENLARGEMENT [None]
  - GASTRIC DISORDER [None]
  - MYOCARDIAL CALCIFICATION [None]
  - SUPRAVENTRICULAR EXTRASYSTOLES [None]
  - VENTRICULAR EXTRASYSTOLES [None]
  - WEIGHT DECREASED [None]
